FAERS Safety Report 18360971 (Version 7)
Quarter: 2022Q4

REPORT INFORMATION
  Report Type: Spontaneous
  Country: US (occurrence: US)
  Receive Date: 20201008
  Receipt Date: 20221231
  Transmission Date: 20230113
  Serious: No
  Sender: FDA-Public Use
  Company Number: US-PFIZER INC-2016600900

PATIENT
  Age: 78 Year
  Sex: Female

DRUGS (6)
  1. PREMARIN [Suspect]
     Active Substance: ESTROGENS, CONJUGATED
     Dosage: 0.625 MG/G, DAILY
     Route: 067
  2. PREMARIN [Suspect]
     Active Substance: ESTROGENS, CONJUGATED
     Dosage: 1 G, CYCLIC (1 G 3 X PER WEEK 90 DAY SUPPLY)
     Route: 067
  3. PREMARIN [Suspect]
     Active Substance: ESTROGENS, CONJUGATED
     Dosage: .625 G (ONE 3X PER WEEK)
  4. XANAX [Concomitant]
     Active Substance: ALPRAZOLAM
     Dosage: 1 DF, DAILY (AT BEDTIME)
  5. LEVOTHYROXINE [Concomitant]
     Active Substance: LEVOTHYROXINE
     Indication: Thyroid disorder
     Dosage: 1 DF, DAILY
  6. ATORVASTATIN [Concomitant]
     Active Substance: ATORVASTATIN
     Indication: Blood cholesterol abnormal
     Dosage: 1 DF, DAILY

REACTIONS (3)
  - Depressed mood [Unknown]
  - Off label use [Unknown]
  - Circumstance or information capable of leading to medication error [Unknown]
